FAERS Safety Report 6046669-X (Version None)
Quarter: 2009Q1

REPORT INFORMATION
  Report Type: 
  Country: None (occurrence: None)
  Receive Date: 20090122
  Receipt Date: 20090115
  Transmission Date: 20090719
  Serious: Yes (Hospitalization)
  Sender: FDA-Public Use
  Company Number: GB-ASTRAZENECA-2009GB00285

PATIENT
  Age: 72 Year
  Sex: Female

DRUGS (13)
  1. ZOLMITRIPTAN [Suspect]
     Indication: MIGRAINE
     Route: 065
  2. ALENDRONIC ACID [Suspect]
     Indication: OSTEOARTHRITIS
     Route: 065
  3. CALCICHEW [Suspect]
     Indication: OSTEOARTHRITIS
     Route: 048
  4. CARBAMAZEPINE [Suspect]
     Indication: EPILEPSY
     Route: 048
  5. CODEINE PHOSPHATE [Suspect]
     Indication: MIGRAINE
     Route: 048
  6. GAVISCON [Suspect]
     Route: 048
  7. PANTOPRAZOLE SODIUM [Suspect]
     Route: 048
  8. ACETAMINOPHEN [Suspect]
     Indication: MIGRAINE
     Route: 048
  9. RISEDRONATE SODIUM [Suspect]
     Indication: OSTEOARTHRITIS
     Route: 048
  10. SERETIDE [Suspect]
     Indication: ASTHMA
     Route: 055
     Dates: start: 20050101
  11. LEVOTHYROXINE SODIUM [Suspect]
     Indication: HYPOTHYROIDISM
     Route: 048
  12. VENTOLIN [Suspect]
     Indication: ASTHMA
     Route: 055
  13. WARFARIN SODIUM [Suspect]
     Indication: DEEP VEIN THROMBOSIS
     Dosage: SLIDING DOSE OF 7-8 MG ONCE DAILY
     Route: 048

REACTIONS (3)
  - CEREBROVASCULAR ACCIDENT [None]
  - COUGH [None]
  - DYSPNOEA [None]
